FAERS Safety Report 19656986 (Version 1)
Quarter: 2021Q3

REPORT INFORMATION
  Report Type: Other
  Country: JP (occurrence: JP)
  Receive Date: 20210804
  Receipt Date: 20210804
  Transmission Date: 20211014
  Serious: Yes (Other)
  Sender: FDA-Public Use
  Company Number: JP-ROCHE-2881509

PATIENT

DRUGS (3)
  1. NIVOLUMAB [Suspect]
     Active Substance: NIVOLUMAB
     Indication: NON-SMALL CELL LUNG CANCER
     Route: 065
  2. PEMBROLIZUMAB. [Suspect]
     Active Substance: PEMBROLIZUMAB
     Indication: NON-SMALL CELL LUNG CANCER
     Route: 065
  3. ATEZOLIZUMAB. [Suspect]
     Active Substance: ATEZOLIZUMAB
     Indication: NON-SMALL CELL LUNG CANCER
     Route: 065

REACTIONS (10)
  - Hepatitis [Unknown]
  - Pneumonitis [Unknown]
  - Skin toxicity [Unknown]
  - Nephritis [Unknown]
  - Cardiotoxicity [Unknown]
  - Colitis [Unknown]
  - Musculoskeletal toxicity [Unknown]
  - Neurotoxicity [Unknown]
  - Adrenal insufficiency [Unknown]
  - Hypophysitis [Unknown]
